FAERS Safety Report 8206717-5 (Version None)
Quarter: 2012Q1

REPORT INFORMATION
  Report Type: 
  Country: None (occurrence: None)
  Receive Date: 20120314
  Receipt Date: 20120308
  Transmission Date: 20120608
  Serious: No
  Sender: FDA-Public Use
  Company Number: US-BIOGENIDEC-2012BI008548

PATIENT
  Age: 31 Year
  Sex: Female

DRUGS (3)
  1. TYSABRI [Suspect]
     Indication: MULTIPLE SCLEROSIS
     Route: 042
     Dates: start: 20041222, end: 20050228
  2. TYSABRI [Suspect]
     Route: 042
     Dates: start: 20100601, end: 20101011
  3. TYSABRI [Suspect]
     Route: 042
     Dates: start: 20120211

REACTIONS (1)
  - ABDOMINAL DISCOMFORT [None]
